FAERS Safety Report 4589391-9 (Version None)
Quarter: 2005Q1

REPORT INFORMATION
  Report Type: 
  Country: None (occurrence: None)
  Receive Date: 20050216
  Receipt Date: 20050128
  Transmission Date: 20050727
  Serious: Yes (Other)
  Sender: FDA-Public Use
  Company Number: USA050290015

PATIENT
  Age: 33 Year
  Sex: Male

DRUGS (1)
  1. HUMATROPE [Suspect]
     Indication: PITUITARY TUMOUR BENIGN
     Dosage: 0.4 MG/DAY   DAY
     Dates: start: 20031009, end: 20050124

REACTIONS (3)
  - NEOPLASM PROGRESSION [None]
  - PHARMACEUTICAL PRODUCT COMPLAINT [None]
  - PITUITARY TUMOUR [None]
